FAERS Safety Report 14169955 (Version 2)
Quarter: 2017Q4

REPORT INFORMATION
  Report Type: Spontaneous
  Country: US (occurrence: US)
  Receive Date: 20171108
  Receipt Date: 20171116
  Transmission Date: 20180321
  Serious: Yes (Hospitalization, Other)
  Sender: FDA-Public Use
  Company Number: US-DRREDDYS-USA/USA/17/0094431

PATIENT
  Sex: Female

DRUGS (4)
  1. GEMCITABINE [Suspect]
     Active Substance: GEMCITABINE\GEMCITABINE HYDROCHLORIDE
     Indication: LUNG NEOPLASM MALIGNANT
     Route: 065
  2. DOCETAXEL. [Suspect]
     Active Substance: DOCETAXEL
     Dosage: EVERY FOURTH WEEK
     Route: 065
     Dates: start: 2013
  3. DOCETAXEL. [Suspect]
     Active Substance: DOCETAXEL
     Indication: LUNG NEOPLASM MALIGNANT
     Dosage: EVERY 3 WEEKS
     Route: 065
     Dates: start: 2013
  4. CISPLATIN. [Suspect]
     Active Substance: CISPLATIN
     Indication: LUNG NEOPLASM MALIGNANT
     Route: 065

REACTIONS (5)
  - Disease progression [Unknown]
  - Drug effect incomplete [Unknown]
  - Drug intolerance [Unknown]
  - Neutropenia [Unknown]
  - Febrile neutropenia [Unknown]

NARRATIVE: CASE EVENT DATE: 201501
